FAERS Safety Report 18136639 (Version 4)
Quarter: 2020Q4

REPORT INFORMATION
  Report Type: Spontaneous
  Country: US (occurrence: US)
  Receive Date: 20200811
  Receipt Date: 20201112
  Transmission Date: 20210113
  Serious: Yes (Other)
  Sender: FDA-Public Use
  Company Number: US-SAOL THERAPEUTICS-2020SAO00219

PATIENT
  Age: 55 Year
  Sex: Female
  Weight: 72.56 kg

DRUGS (17)
  1. LYRICA [Concomitant]
     Active Substance: PREGABALIN
  2. LIPITOR [Concomitant]
     Active Substance: ATORVASTATIN CALCIUM
  3. WELLBUTRIN [Concomitant]
     Active Substance: BUPROPION HYDROCHLORIDE
  4. IRON [Concomitant]
     Active Substance: IRON
  5. PRILOSEC [Concomitant]
     Active Substance: OMEPRAZOLE MAGNESIUM
  6. LIORESAL [Suspect]
     Active Substance: BACLOFEN
     Dosage: 159.93 ?G\DAY
     Route: 037
     Dates: end: 20200902
  7. TORSEMIDE. [Concomitant]
     Active Substance: TORSEMIDE
  8. LIORESAL [Suspect]
     Active Substance: BACLOFEN
     Indication: MUSCLE SPASTICITY
     Dosage: 275.86 ?G, \DAY; 11.23 ?G/HOUR, FLEX 12 ?G AT 9 P.M.
     Route: 037
     Dates: start: 201808
  9. METHADONE [Concomitant]
     Active Substance: METHADONE HYDROCHLORIDE
  10. KCL [Concomitant]
     Active Substance: POTASSIUM CHLORIDE
  11. CYMBALTA [Concomitant]
     Active Substance: DULOXETINE HYDROCHLORIDE
  12. FLOMAX [Concomitant]
     Active Substance: TAMSULOSIN HYDROCHLORIDE
  13. ROXICODONE [Concomitant]
     Active Substance: OXYCODONE HYDROCHLORIDE
  14. LIORESAL [Suspect]
     Active Substance: BACLOFEN
     Dosage: UNK
     Route: 037
     Dates: start: 20200902
  15. VITAMIN D3 [Concomitant]
     Active Substance: CHOLECALCIFEROL
  16. TIZANIDINE. [Concomitant]
     Active Substance: TIZANIDINE
  17. AMBIEN [Concomitant]
     Active Substance: ZOLPIDEM TARTRATE

REACTIONS (6)
  - Device dislocation [Recovered/Resolved]
  - Device kink [Recovered/Resolved]
  - Muscle spasticity [Recovered/Resolved]
  - Spinal fusion surgery [Not Recovered/Not Resolved]
  - Device infusion issue [Recovered/Resolved]
  - Musculoskeletal stiffness [Not Recovered/Not Resolved]

NARRATIVE: CASE EVENT DATE: 20200513
